FAERS Safety Report 14795071 (Version 6)
Quarter: 2022Q4

REPORT INFORMATION
  Report Type: Spontaneous
  Country: US (occurrence: None)
  Receive Date: 20180423
  Receipt Date: 20221229
  Transmission Date: 20230112
  Serious: Yes (Other)
  Sender: FDA-Public Use
  Company Number: 2018SE47825

PATIENT
  Age: 52 Year
  Sex: Male
  Weight: 138.1 kg

DRUGS (58)
  1. NEXIUM [Suspect]
     Active Substance: ESOMEPRAZOLE MAGNESIUM
     Indication: Gastrooesophageal reflux disease
     Route: 048
     Dates: start: 20060122, end: 20141210
  2. NEXIUM [Suspect]
     Active Substance: ESOMEPRAZOLE MAGNESIUM
     Indication: Gastrooesophageal reflux disease
     Route: 048
     Dates: start: 201111, end: 201111
  3. NEXIUM [Suspect]
     Active Substance: ESOMEPRAZOLE MAGNESIUM
     Indication: Gastrooesophageal reflux disease
     Dosage: GENERIC
     Route: 065
     Dates: start: 20150630, end: 20170405
  4. NEXIUM 24HR [Suspect]
     Active Substance: ESOMEPRAZOLE MAGNESIUM
     Route: 048
  5. PRILOSEC [Suspect]
     Active Substance: OMEPRAZOLE MAGNESIUM
     Indication: Gastrooesophageal reflux disease
     Route: 048
     Dates: start: 201111, end: 201111
  6. PRILOSEC [Suspect]
     Active Substance: OMEPRAZOLE MAGNESIUM
     Indication: Gastrooesophageal reflux disease
     Dosage: GENERIC
     Route: 065
     Dates: start: 20150713, end: 20160526
  7. PRILOSEC OTC [Suspect]
     Active Substance: OMEPRAZOLE MAGNESIUM
     Route: 048
  8. DEXILANT [Suspect]
     Active Substance: DEXLANSOPRAZOLE
     Route: 065
  9. PREVACID [Suspect]
     Active Substance: LANSOPRAZOLE
     Route: 065
  10. PREVACID 24 HR [Suspect]
     Active Substance: LANSOPRAZOLE
     Route: 065
  11. PROTONIX [Suspect]
     Active Substance: PANTOPRAZOLE SODIUM
     Indication: Gastrooesophageal reflux disease
     Route: 065
     Dates: start: 20190201
  12. PROTONIX [Suspect]
     Active Substance: PANTOPRAZOLE SODIUM
     Indication: Gastrooesophageal reflux disease
     Route: 065
     Dates: start: 201111, end: 201111
  13. ENALAPRIL [Concomitant]
     Active Substance: ENALAPRIL
  14. HUMULIN NOS [Concomitant]
     Active Substance: INSULIN HUMAN
  15. TOPAMAX [Concomitant]
     Active Substance: TOPIRAMATE
  16. TORSEMIDE [Concomitant]
     Active Substance: TORSEMIDE
  17. GABAPENTIN [Concomitant]
     Active Substance: GABAPENTIN
  18. LEVETIRACETAM [Concomitant]
     Active Substance: LEVETIRACETAM
  19. CYMBALTA [Concomitant]
     Active Substance: DULOXETINE HYDROCHLORIDE
  20. LIPITOR [Concomitant]
     Active Substance: ATORVASTATIN CALCIUM
  21. DIOVAN [Concomitant]
     Active Substance: VALSARTAN
  22. PROMETHAZINE [Concomitant]
     Active Substance: PROMETHAZINE HYDROCHLORIDE
  23. NIASPAN [Concomitant]
     Active Substance: NIACIN
  24. PREDNISOLONE ACETATE [Concomitant]
     Active Substance: PREDNISOLONE ACETATE
  25. TOBRADEX [Concomitant]
     Active Substance: DEXAMETHASONE\TOBRAMYCIN
  26. CARISOPRODOL [Concomitant]
     Active Substance: CARISOPRODOL
  27. ACETAMINOPHEN\HYDROCODONE BITARTRATE [Concomitant]
     Active Substance: ACETAMINOPHEN\HYDROCODONE BITARTRATE
  28. SUMYCIN [Concomitant]
     Active Substance: TETRACYCLINE
  29. NEOMYCIN/POLYMYXIN B/TRIAMCINOLONE [Concomitant]
  30. CIPRO [Concomitant]
     Active Substance: CIPROFLOXACIN HYDROCHLORIDE
  31. MONOPRIL [Concomitant]
     Active Substance: FOSINOPRIL SODIUM
  32. LAC-HYDRIN [Concomitant]
     Active Substance: AMMONIUM LACTATE
  33. VIAGRA [Concomitant]
     Active Substance: SILDENAFIL CITRATE
  34. AUGMENTIN [Concomitant]
     Active Substance: AMOXICILLIN\CLAVULANATE POTASSIUM
  35. GLYBURIDE [Concomitant]
     Active Substance: GLYBURIDE
  36. HYDROCHLOROTHIAZIDE [Concomitant]
     Active Substance: HYDROCHLOROTHIAZIDE
  37. OXYCODONE AND ACETAMINOPHEN [Concomitant]
     Active Substance: ACETAMINOPHEN\OXYCODONE HYDROCHLORIDE
  38. LODINE [Concomitant]
     Active Substance: ETODOLAC
  39. POTASSIUM CHLORIDE [Concomitant]
     Active Substance: POTASSIUM CHLORIDE
  40. GUAIFENESIN [Concomitant]
     Active Substance: GUAIFENESIN
  41. ALLEGRA [Concomitant]
     Active Substance: FEXOFENADINE HYDROCHLORIDE
  42. BACTROBAN [Concomitant]
     Active Substance: MUPIROCIN\MUPIROCIN CALCIUM
  43. ENDOCET [Concomitant]
     Active Substance: ACETAMINOPHEN\OXYCODONE HYDROCHLORIDE
  44. VASOTEC [Concomitant]
     Active Substance: ENALAPRIL MALEATE
  45. GLUCOPHAGE [Concomitant]
     Active Substance: METFORMIN HYDROCHLORIDE
  46. AMARYL [Concomitant]
     Active Substance: GLIMEPIRIDE
  47. DICLOFENAC [Concomitant]
     Active Substance: DICLOFENAC
  48. HUMULIN NOS [Concomitant]
     Active Substance: INSULIN HUMAN
  49. MELOXICAM [Concomitant]
     Active Substance: MELOXICAM
  50. AMOXICILLIN\CLAVULANATE POTASSIUM [Concomitant]
     Active Substance: AMOXICILLIN\CLAVULANATE POTASSIUM
  51. SIMVASTATIN [Concomitant]
     Active Substance: SIMVASTATIN
  52. LACLOTION [Concomitant]
     Active Substance: AMMONIUM LACTATE
  53. PROMETHAZINE HYDROCHLORIDE/PETHIDINE HYDROCHLORIDE [Concomitant]
  54. VITAMIN D [Concomitant]
     Active Substance: VITAMIN D NOS
  55. SULFAMETHOXAZOLE\TRIMETHOPRIM [Concomitant]
     Active Substance: SULFAMETHOXAZOLE\TRIMETHOPRIM
  56. AZASITE [Concomitant]
     Active Substance: AZITHROMYCIN MONOHYDRATE
  57. SPIRIVA [Concomitant]
     Active Substance: TIOTROPIUM BROMIDE MONOHYDRATE
  58. SYMBICORT [Concomitant]
     Active Substance: BUDESONIDE\FORMOTEROL FUMARATE DIHYDRATE

REACTIONS (6)
  - Chronic kidney disease [Not Recovered/Not Resolved]
  - Acute kidney injury [Not Recovered/Not Resolved]
  - End stage renal disease [Unknown]
  - Renal failure [Unknown]
  - Renal injury [Unknown]
  - Chronic kidney disease-mineral and bone disorder [Unknown]

NARRATIVE: CASE EVENT DATE: 20060101
